FAERS Safety Report 25618898 (Version 1)
Quarter: 2025Q3

REPORT INFORMATION
  Report Type: Spontaneous
  Country: US (occurrence: US)
  Receive Date: 20250729
  Receipt Date: 20250729
  Transmission Date: 20251020
  Serious: Yes (Hospitalization)
  Sender: BIOGEN
  Company Number: US-BIOGEN-2025BI01318461

PATIENT
  Age: 43 Year
  Sex: Female

DRUGS (1)
  1. ZURZUVAE [Suspect]
     Active Substance: ZURANOLONE
     Indication: Perinatal depression
     Route: 050

REACTIONS (8)
  - Homicidal ideation [Unknown]
  - Cognitive disorder [Unknown]
  - Slow speech [Unknown]
  - Tremor [Unknown]
  - Muscle twitching [Unknown]
  - Confusional state [Unknown]
  - Dizziness [Unknown]
  - Therapeutic response shortened [Unknown]
